FAERS Safety Report 17578168 (Version 1)
Quarter: 2020Q1

REPORT INFORMATION
  Report Type: Spontaneous
  Country: US (occurrence: US)
  Receive Date: 20200324
  Receipt Date: 20200324
  Transmission Date: 20200409
  Serious: No
  Sender: FDA-Public Use
  Company Number: US-ELI_LILLY_AND_COMPANY-US202003006345

PATIENT
  Sex: Female

DRUGS (3)
  1. RIZATRIPTAN. [Concomitant]
     Active Substance: RIZATRIPTAN
     Indication: MIGRAINE
     Dosage: UNK, UNKNOWN
     Route: 065
  2. TOPAMAX [Concomitant]
     Active Substance: TOPIRAMATE
     Indication: MIGRAINE
     Dosage: UNK, UNKNOWN
     Route: 065
  3. EMGALITY [Suspect]
     Active Substance: GALCANEZUMAB-GNLM
     Indication: MIGRAINE
     Dosage: 120 MG, UNKNOWN
     Route: 058
     Dates: start: 20200109

REACTIONS (7)
  - Injection site induration [Recovering/Resolving]
  - Injection site pruritus [Recovering/Resolving]
  - Product dose omission [Unknown]
  - Injection site pain [Recovering/Resolving]
  - Injection site swelling [Recovering/Resolving]
  - Injection site warmth [Not Recovered/Not Resolved]
  - Injection site erythema [Recovering/Resolving]
